FAERS Safety Report 9024996 (Version 3)
Quarter: 2013Q2

REPORT INFORMATION
  Report Type: Spontaneous
  Country: FR (occurrence: None)
  Receive Date: 20130104
  Receipt Date: 20130422
  Transmission Date: 20140414
  Serious: Yes (Hospitalization, Other)
  Sender: FDA-Public Use
  Company Number: AXC-2012-000599

PATIENT
  Age: 50 Year
  Sex: Female

DRUGS (6)
  1. PYLERA [Suspect]
     Indication: HELICOBACTER GASTRITIS
     Route: 048
     Dates: start: 20121005, end: 20121008
  2. OMEPRAZOLE (OMEPRAZOLE) [Concomitant]
     Route: 048
     Dates: start: 20121005, end: 20121008
  3. SMECTA /07327601/ (DIOSMECTITE) [Concomitant]
  4. IMODIUM (LOPERAMIDE HYDROCHLORIDE) [Concomitant]
  5. DEBRIDAT /00465201/ (TRIMEBUTINE) [Concomitant]
  6. ESOMEPRAZOLE (ESOMEPRAZOLE) [Concomitant]

REACTIONS (8)
  - Nausea [None]
  - Vomiting [None]
  - Decreased appetite [None]
  - Weight decreased [None]
  - Abdominal pain [None]
  - Pyrexia [None]
  - Chills [None]
  - Drug intolerance [None]
